APPROVED DRUG PRODUCT: ESTRADIOL
Active Ingredient: ESTRADIOL
Strength: 0.01%
Dosage Form/Route: CREAM;VAGINAL
Application: A210194 | Product #001 | TE Code: AB
Applicant: PADAGIS ISRAEL PHARMACEUTICALS LTD
Approved: Jan 22, 2018 | RLD: No | RS: No | Type: RX